FAERS Safety Report 11754433 (Version 1)
Quarter: 2015Q4

REPORT INFORMATION
  Report Type: Spontaneous
  Country: US (occurrence: US)
  Receive Date: 20151119
  Receipt Date: 20151119
  Transmission Date: 20160304
  Serious: No
  Sender: FDA-Public Use
  Company Number: US-BRISTOL-MYERS SQUIBB COMPANY-BMS-2015-080188

PATIENT
  Sex: Female

DRUGS (10)
  1. BUSPIRONE [Concomitant]
     Active Substance: BUSPIRONE HYDROCHLORIDE
     Indication: BIPOLAR I DISORDER
     Dosage: UNK
  2. ATENOLOL. [Concomitant]
     Active Substance: ATENOLOL
     Indication: HYPERTENSION
     Dosage: UNK
     Route: 065
  3. BACLOFEN. [Concomitant]
     Active Substance: BACLOFEN
     Indication: MUSCLE SPASMS
     Dosage: UNK
     Route: 065
  4. LYRICA [Concomitant]
     Active Substance: PREGABALIN
     Indication: PRODUCT USED FOR UNKNOWN INDICATION
  5. HARVONI [Concomitant]
     Active Substance: LEDIPASVIR\SOFOSBUVIR
     Indication: HEPATITIS C
     Dosage: UNK
     Route: 065
  6. DIAZEPAM. [Concomitant]
     Active Substance: DIAZEPAM
     Indication: BIPOLAR I DISORDER
     Dosage: 2.5 MG, UNK
     Route: 065
  7. BUSPIRONE [Concomitant]
     Active Substance: BUSPIRONE HYDROCHLORIDE
     Indication: MUSCLE SPASMS
  8. DIAZEPAM. [Concomitant]
     Active Substance: DIAZEPAM
     Indication: MUSCLE SPASMS
  9. ABILIFY [Suspect]
     Active Substance: ARIPIPRAZOLE
     Indication: FIBROMYALGIA
     Dosage: 10 MG, QD
     Route: 065
  10. ABILIFY [Suspect]
     Active Substance: ARIPIPRAZOLE
     Indication: BIPOLAR I DISORDER

REACTIONS (8)
  - Wrong technique in product usage process [Unknown]
  - Muscle spasms [Unknown]
  - Somnolence [Not Recovered/Not Resolved]
  - Fibromyalgia [Unknown]
  - Off label use [Unknown]
  - Depression [Not Recovered/Not Resolved]
  - Movement disorder [Unknown]
  - Emotional disorder [Not Recovered/Not Resolved]
